FAERS Safety Report 4998034-1 (Version None)
Quarter: 2006Q2

REPORT INFORMATION
  Report Type: 
  Country: None (occurrence: None)
  Receive Date: 20060508
  Receipt Date: 20060421
  Transmission Date: 20061013
  Serious: Yes (Other)
  Sender: FDA-Public Use
  Company Number: IMP_2250_2006

PATIENT
  Age: 57 Year
  Sex: Female

DRUGS (5)
  1. CLARITIN D-12 [Suspect]
     Indication: EAR CONGESTION
     Dosage: DF QDAY
     Dates: start: 20060417, end: 20060418
  2. CLARITIN D-12 [Suspect]
     Indication: SINUS CONGESTION
     Dosage: DF QDAY
     Dates: start: 20060417, end: 20060418
  3. CLARITIN D-12 [Suspect]
     Indication: SINUSITIS
     Dosage: DF QDAY
     Dates: start: 20060417, end: 20060418
  4. NASONEX [Concomitant]
  5. SALINEX NASAL [Concomitant]

REACTIONS (1)
  - ABNORMAL BEHAVIOUR [None]
